FAERS Safety Report 7243045-9 (Version None)
Quarter: 2011Q1

REPORT INFORMATION
  Report Type: 
  Country: None (occurrence: None)
  Receive Date: 20110125
  Receipt Date: 20101018
  Transmission Date: 20110831
  Serious: No
  Sender: FDA-Public Use
  Company Number: US-AMGEN-USASP2010000601

PATIENT
  Age: 61 Year
  Sex: Female

DRUGS (6)
  1. MEPERIDINE HCL [Concomitant]
  2. PROLIA [Suspect]
     Indication: OSTEOPOROSIS POSTMENOPAUSAL
     Dosage: 60 MG, Q6MO
     Dates: start: 20100913
  3. NAPROSYN [Concomitant]
     Dosage: UNK MG, UNK
  4. TYLENOL (CAPLET) [Concomitant]
  5. ZANTAC                             /00550801/ [Concomitant]
     Dosage: UNK MG, UNK
  6. ALLERGY SINUS [Concomitant]

REACTIONS (2)
  - ABDOMINAL PAIN [None]
  - DIARRHOEA [None]
